FAERS Safety Report 9588186 (Version 1)
Quarter: 2013Q4

REPORT INFORMATION
  Report Type: Spontaneous
  Country: US (occurrence: US)
  Receive Date: 20131003
  Receipt Date: 20131003
  Transmission Date: 20140711
  Serious: No
  Sender: FDA-Public Use
  Company Number: US-AMGEN-USASP2012063085

PATIENT
  Age: 38 Year
  Sex: Female
  Weight: 104.31 kg

DRUGS (11)
  1. ENBREL [Suspect]
     Indication: PRODUCT USED FOR UNKNOWN INDICATION
     Dosage: 50 MG, QWK
     Route: 058
  2. WELLBUTRIN [Concomitant]
     Dosage: 100 MG, UNK
  3. ZOLOFT [Concomitant]
     Dosage: 25 MG, UNK
  4. FENTANYL [Concomitant]
     Dosage: 0.05 MG/1, UNK
  5. OXYCODON [Concomitant]
     Dosage: 5 MG, UNK
  6. VALIUM                             /00017001/ [Concomitant]
     Dosage: 2 MG, UNK
  7. VITAMIN D                          /00107901/ [Concomitant]
     Dosage: 1000 UNIT, UNK
  8. MULTIVITAMIN                       /02160401/ [Concomitant]
     Dosage: UNK
  9. VITAMIN B12                        /00056201/ [Concomitant]
     Dosage: 1 MG, CHW UNK
  10. VITAMIN B-6 [Concomitant]
     Dosage: 250 MG, UNK
  11. LEVBID [Concomitant]
     Dosage: 0.375 ERUNK, UNK

REACTIONS (1)
  - Injection site pain [Unknown]
